FAERS Safety Report 5096456-4 (Version None)
Quarter: 2006Q3

REPORT INFORMATION
  Report Type: 
  Country: None (occurrence: None)
  Receive Date: 20060830
  Receipt Date: 20060818
  Transmission Date: 20061208
  Serious: Yes (Hospitalization)
  Sender: FDA-Public Use
  Company Number: 2006RL000266

PATIENT
  Age: 79 Year
  Sex: Female

DRUGS (6)
  1. NIZATIDINE [Suspect]
     Indication: DRUG USE FOR UNKNOWN INDICATION
     Dosage: 75 MG; BID; PO
     Route: 048
  2. MELOXICAM [Concomitant]
  3. ANASTROZOLE [Concomitant]
  4. DIGOXIN [Concomitant]
  5. ALFACALCIDOL [Concomitant]
  6. PYRIDOSTIGMINE BROMIDE [Concomitant]

REACTIONS (2)
  - DIALYSIS [None]
  - NEPHRITIS INTERSTITIAL [None]
